FAERS Safety Report 11947729 (Version 4)
Quarter: 2016Q1

REPORT INFORMATION
  Report Type: Spontaneous
  Country: JP (occurrence: JP)
  Receive Date: 20160125
  Receipt Date: 20160303
  Transmission Date: 20160526
  Serious: Yes (Hospitalization, Disabling)
  Sender: FDA-Public Use
  Company Number: JP-TEVA-627395ISR

PATIENT
  Age: 77 Year
  Sex: Male

DRUGS (6)
  1. ZOSYN [Concomitant]
     Active Substance: PIPERACILLIN SODIUM\TAZOBACTAM SODIUM
     Indication: NEUTROPENIA
  2. CARBOPLATIN ^NK^ [Suspect]
     Active Substance: CARBOPLATIN
     Indication: LUNG NEOPLASM MALIGNANT
     Dosage: 500 MICROGRAM DAILY;
     Route: 042
     Dates: start: 20151221, end: 20151221
  3. ABRAXANE [Suspect]
     Active Substance: PACLITAXEL
     Dosage: 500 MILLIGRAM DAILY; DR
     Route: 042
     Dates: start: 20151221, end: 20151221
  4. FILGRASTIM BS INJ. ^NK^ [Suspect]
     Active Substance: FILGRASTIM
     Indication: COLONY STIMULATING FACTOR PROPHYLAXIS
     Dosage: 75 MICROGRAM DAILY;
     Route: 058
     Dates: start: 20160106, end: 20160115
  5. ABRAXANE [Suspect]
     Active Substance: PACLITAXEL
     Indication: LUNG NEOPLASM MALIGNANT
     Dosage: 150 MILLIGRAM DAILY; DR
     Route: 042
     Dates: start: 20151221, end: 20160104
  6. ZOSYN [Concomitant]
     Active Substance: PIPERACILLIN SODIUM\TAZOBACTAM SODIUM
     Indication: BACTERIAL INFECTION
     Dosage: 13.5 GRAM DAILY; DR
     Route: 042
     Dates: start: 20160106, end: 20160111

REACTIONS (4)
  - Sepsis [Unknown]
  - Renal failure [Not Recovered/Not Resolved]
  - Interstitial lung disease [Not Recovered/Not Resolved]
  - Pancytopenia [Not Recovered/Not Resolved]

NARRATIVE: CASE EVENT DATE: 20160109
